FAERS Safety Report 5884498-8 (Version None)
Quarter: 2008Q3

REPORT INFORMATION
  Report Type: 
  Country: None (occurrence: None)
  Receive Date: 20080916
  Receipt Date: 20080904
  Transmission Date: 20090109
  Serious: Yes (Other)
  Sender: FDA-Public Use
  Company Number: DE-JNJFOC-20080901283

PATIENT
  Age: 25 Year
  Sex: Female
  Weight: 80 kg

DRUGS (10)
  1. REMICADE [Suspect]
     Indication: PYODERMA GANGRENOSUM
     Dosage: FIRST DOSE ADMINISTERED
     Route: 042
  2. MORPHINE [Concomitant]
     Indication: PAIN
  3. KETAMIN [Concomitant]
     Indication: PAIN
  4. DECORTIN H [Concomitant]
     Route: 048
  5. DECORTIN H [Concomitant]
     Route: 048
  6. AZATHIOPRINE [Concomitant]
     Route: 048
  7. AMITRIPTYLINE HCL [Concomitant]
     Route: 048
  8. NALOXON [Concomitant]
  9. ACETAMINOPHEN [Concomitant]
  10. HEPARIN [Concomitant]

REACTIONS (1)
  - VITH NERVE PARALYSIS [None]
